FAERS Safety Report 9580284 (Version 1)
Quarter: 2013Q3

REPORT INFORMATION
  Report Type: Spontaneous
  Country: GB (occurrence: None)
  Receive Date: 20130930
  Receipt Date: 20130930
  Transmission Date: 20140515
  Serious: Yes (Hospitalization)
  Sender: FDA-Public Use
  Company Number: GER/UKI/13/0034710

PATIENT
  Age: 27 Year
  Sex: Male

DRUGS (1)
  1. RISPERIDONE [Suspect]
     Indication: ANTISOCIAL BEHAVIOUR
     Route: 048

REACTIONS (2)
  - Extrapyramidal disorder [None]
  - Treatment noncompliance [None]
